FAERS Safety Report 6003937-5 (Version None)
Quarter: 2008Q4

REPORT INFORMATION
  Report Type: 
  Country: None (occurrence: None)
  Receive Date: 20081216
  Receipt Date: 20081208
  Transmission Date: 20090506
  Serious: Yes (Other)
  Sender: FDA-Public Use
  Company Number: US-ASTRAZENECA-2008UW27269

PATIENT
  Age: 46 Year
  Sex: Female
  Weight: 108.9 kg

DRUGS (9)
  1. CRESTOR [Suspect]
     Indication: BLOOD CHOLESTEROL INCREASED
     Route: 048
     Dates: start: 20060101
  2. NABUMETONE [Concomitant]
  3. LASIX [Concomitant]
  4. ZOLPIDEM TARTRATE [Concomitant]
  5. YASMIN [Concomitant]
  6. POTASSIUM CHLORIDE [Concomitant]
  7. ALBUTEROL [Concomitant]
     Route: 055
  8. METROGEL [Concomitant]
     Route: 061
  9. DIAZEPAM [Concomitant]
     Route: 048

REACTIONS (2)
  - CEREBRAL PALSY [None]
  - MYALGIA [None]
